FAERS Safety Report 23426926 (Version 1)
Quarter: 2024Q1

REPORT INFORMATION
  Report Type: Spontaneous
  Country: CN (occurrence: CN)
  Receive Date: 20240122
  Receipt Date: 20240122
  Transmission Date: 20240409
  Serious: Yes (Death, Life-Threatening, Hospitalization, Other)
  Sender: FDA-Public Use
  Company Number: CN-MLMSERVICE-20240104-4761880-1

PATIENT
  Age: 10 Year
  Sex: Male

DRUGS (21)
  1. CISPLATIN [Suspect]
     Active Substance: CISPLATIN
     Indication: Neuroblastoma
     Dosage: ON WEEK 7, 13 AND 28.
     Dates: start: 2014
  2. ETOPOSIDE [Suspect]
     Active Substance: ETOPOSIDE
     Indication: Metastases to pancreas
     Dosage: ON WEEK 7, 13 AND 28.
     Dates: start: 2014
  3. IRINOTECAN [Suspect]
     Active Substance: IRINOTECAN
     Indication: Metastases to pancreas
     Dosage: ON WEEK 1, 4, 24 AND 36.
     Dates: start: 2014, end: 2015
  4. TOPOTECAN [Suspect]
     Active Substance: TOPOTECAN HYDROCHLORIDE
     Indication: Metastases to kidney
     Dosage: ON WEEK 1, 4, 24 AND 36.
     Dates: start: 2014, end: 2015
  5. VINCRISTINE [Suspect]
     Active Substance: VINCRISTINE
     Indication: Metastases to the mediastinum
     Dosage: ON WEEK 10, 17 AND 32.
     Dates: start: 2014, end: 2015
  6. MESNA [Suspect]
     Active Substance: MESNA
     Indication: Metastases to kidney
     Dosage: CTX+DOX+VCR ON WEEK 10, 17 AND 32.
     Dates: start: 2014, end: 2015
  7. DOXORUBICIN [Suspect]
     Active Substance: DOXORUBICIN
     Indication: Metastases to lymph nodes
     Dosage: ON WEEK 10, 17 AND 32.
     Dates: start: 2014, end: 2015
  8. CYCLOPHOSPHAMIDE [Suspect]
     Active Substance: CYCLOPHOSPHAMIDE
     Indication: Metastases to muscle
     Dosage: CTX+TOPO ON WEEK 1, 4, 24 AND 36.
     Dates: start: 2014, end: 2015
  9. ISOTRETINOIN [Suspect]
     Active Substance: ISOTRETINOIN
     Indication: Metastases to abdominal cavity
     Dosage: ON WEEK 46.
     Dates: start: 2015, end: 2015
  10. CYCLOPHOSPHAMIDE [Suspect]
     Active Substance: CYCLOPHOSPHAMIDE
     Indication: Metastases to lymph nodes
     Dosage: CTX+DOX+VCR ON WEEK 10, 17 AND 32.
     Dates: start: 2014, end: 2015
  11. ETOPOSIDE [Suspect]
     Active Substance: ETOPOSIDE
     Indication: Metastases to muscle
     Dosage: ON WEEK 7, 13 AND 28.
     Dates: start: 2014
  12. CISPLATIN [Suspect]
     Active Substance: CISPLATIN
     Indication: Metastases to kidney
     Dosage: ON WEEK 7, 13 AND 28.
     Dates: start: 2014
  13. DOXORUBICIN [Suspect]
     Active Substance: DOXORUBICIN
     Indication: Metastases to kidney
     Dosage: LIPOSOMAL ON WEEK 10, 17 AND 32.
     Dates: start: 2014, end: 2015
  14. DOXORUBICIN [Suspect]
     Active Substance: DOXORUBICIN
     Indication: Metastases to lymph nodes
     Dosage: LIPOSOMAL ON WEEK 10, 17 AND 32.
     Dates: start: 2014, end: 2015
  15. VINCRISTINE [Suspect]
     Active Substance: VINCRISTINE
     Indication: Neuroblastoma
     Dosage: ON WEEK 10, 17 AND 32.
     Dates: start: 2014, end: 2015
  16. TOPOTECAN [Suspect]
     Active Substance: TOPOTECAN HYDROCHLORIDE
     Indication: Metastases to abdominal cavity
     Dosage: ON WEEK 1, 4, 24 AND 36.
     Dates: start: 2014, end: 2015
  17. DOXORUBICIN [Suspect]
     Active Substance: DOXORUBICIN
     Indication: Metastases to the mediastinum
     Dosage: ON WEEK 10, 17 AND 32.
     Dates: start: 2014, end: 2015
  18. CYCLOPHOSPHAMIDE [Suspect]
     Active Substance: CYCLOPHOSPHAMIDE
     Indication: Metastases to the mediastinum
     Dosage: CTX+TOPO ON WEEK 1, 4, 24 AND 36.
     Dates: start: 2014, end: 2015
  19. IRINOTECAN [Suspect]
     Active Substance: IRINOTECAN
     Indication: Metastases to kidney
     Dosage: ON WEEK 1, 4, 24 AND 36.
     Dates: start: 2014, end: 2015
  20. ISOTRETINOIN [Suspect]
     Active Substance: ISOTRETINOIN
     Indication: Metastases to lymph nodes
     Dosage: ON WEEK 46.
     Dates: start: 2015, end: 2015
  21. CYCLOPHOSPHAMIDE [Suspect]
     Active Substance: CYCLOPHOSPHAMIDE
     Indication: Metastases to abdominal cavity
     Dosage: CTX+DOX+VCR ON WEEK 10, 17 AND 32.
     Dates: start: 2014, end: 2015

REACTIONS (4)
  - PTPN11 gene mutation [Fatal]
  - KMT2A gene mutation [Fatal]
  - Chromosomal deletion [Fatal]
  - Acute myeloid leukaemia [Fatal]

NARRATIVE: CASE EVENT DATE: 20210701
